FAERS Safety Report 4521026-3 (Version None)
Quarter: 2004Q4

REPORT INFORMATION
  Report Type: 
  Country: None (occurrence: None)
  Receive Date: 20041208
  Receipt Date: 20041202
  Transmission Date: 20050328
  Serious: Yes (Congenital Anomaly)
  Sender: FDA-Public Use
  Company Number: 200413581EU

PATIENT
  Age: 3 Month
  Sex: 0

DRUGS (1)
  1. FLAGYL [Suspect]
     Indication: VAGINITIS BACTERIAL
     Route: 064
     Dates: start: 20031202, end: 20031204

REACTIONS (2)
  - CONGENITAL VENTRICULAR SEPTAL DEFECT [None]
  - DRUG EXPOSURE DURING PREGNANCY [None]
